FAERS Safety Report 8426682-5 (Version None)
Quarter: 2012Q2

REPORT INFORMATION
  Report Type: 
  Country: None (occurrence: None)
  Receive Date: 20120611
  Receipt Date: 20120604
  Transmission Date: 20120825
  Serious: Yes (Hospitalization, Other)
  Sender: FDA-Public Use
  Company Number: US-PFIZER INC-2012005007

PATIENT
  Sex: Male
  Weight: 221 kg

DRUGS (6)
  1. IBUPROFEN (ADVIL) [Suspect]
     Indication: PAIN
     Dosage: 200 MG, UNK
     Route: 048
     Dates: end: 20120101
  2. IBUPROFEN (ADVIL) [Suspect]
     Dosage: UNK
  3. IBUPROFEN (ADVIL) [Suspect]
     Indication: HEADACHE
     Dosage: 200 MG, UNK
     Route: 048
     Dates: start: 20111225
  4. IBUPROFEN (ADVIL) [Suspect]
     Dosage: 20000 MG, UNK
     Route: 048
     Dates: start: 20111225, end: 20111225
  5. IBUPROFEN (ADVIL) [Suspect]
     Dosage: UNK
  6. INSULIN [Concomitant]
     Indication: DIABETES MELLITUS
     Dosage: UNK
     Dates: end: 20120101

REACTIONS (22)
  - INCORRECT DOSE ADMINISTERED [None]
  - LOSS OF CONSCIOUSNESS [None]
  - HEART RATE INCREASED [None]
  - NAUSEA [None]
  - DIZZINESS [None]
  - INFLUENZA [None]
  - ACCIDENTAL OVERDOSE [None]
  - CHILLS [None]
  - SELF-MEDICATION [None]
  - PRODUCT QUALITY ISSUE [None]
  - RESPIRATORY ARREST [None]
  - POLLAKIURIA [None]
  - SKIN DISCOLOURATION [None]
  - FALL [None]
  - APHAGIA [None]
  - GASTRIC DISORDER [None]
  - MALAISE [None]
  - GASTRIC ULCER HAEMORRHAGE [None]
  - HEAD INJURY [None]
  - HEADACHE [None]
  - FLUID INTAKE REDUCED [None]
  - DRUG INEFFECTIVE [None]
